FAERS Safety Report 6589717-0 (Version None)
Quarter: 2010Q1

REPORT INFORMATION
  Report Type: 
  Country: None (occurrence: None)
  Receive Date: 20100212
  Receipt Date: 20100208
  Transmission Date: 20100710
  Serious: Yes (Congenital Anomaly)
  Sender: FDA-Public Use
  Company Number: 8042422

PATIENT
  Sex: Male

DRUGS (7)
  1. KEPPRA [Suspect]
     Indication: CONVULSION
     Dosage: 1500 MG, DAILY TRANSPLACENTAL, TRANSMAMMARY
     Route: 064
     Dates: end: 20070501
  2. KEPPRA [Suspect]
     Indication: CONVULSION
     Dosage: 1500 MG, DAILY TRANSPLACENTAL, TRANSMAMMARY
     Route: 064
     Dates: end: 20090110
  3. KEPPRA [Suspect]
     Indication: CONVULSION
     Dosage: 1500 MG, DAILY TRANSPLACENTAL, TRANSMAMMARY
     Route: 064
     Dates: start: 20070815
  4. FOLIC ACID [Concomitant]
  5. VITAMIN TAB [Concomitant]
  6. IRON [Concomitant]
  7. LAMICTAL [Concomitant]

REACTIONS (13)
  - BRONCHIAL HYPERREACTIVITY [None]
  - CARDIAC MURMUR [None]
  - CONJUNCTIVITIS [None]
  - EAR INFECTION [None]
  - HYPOSPADIAS [None]
  - LARYNGOMALACIA [None]
  - MATERNAL DRUGS AFFECTING FOETUS [None]
  - NASOPHARYNGITIS [None]
  - NEONATAL RESPIRATORY DISTRESS SYNDROME [None]
  - RESPIRATORY SYNCYTIAL VIRUS INFECTION [None]
  - TRANSIENT TACHYPNOEA OF THE NEWBORN [None]
  - UPPER RESPIRATORY TRACT INFECTION [None]
  - VIRAL INFECTION [None]
